FAERS Safety Report 9002138 (Version 1)
Quarter: 2013Q1

REPORT INFORMATION
  Report Type: Spontaneous
  Country: AU (occurrence: AU)
  Receive Date: 20130107
  Receipt Date: 20130107
  Transmission Date: 20140127
  Serious: No
  Sender: FDA-Public Use
  Company Number: AU-ELI_LILLY_AND_COMPANY-AU201301000922

PATIENT
  Age: 81 Year
  Sex: Male

DRUGS (3)
  1. ZYPREXA [Suspect]
     Dosage: 5 MG, BID
     Route: 048
  2. ZYPREXA [Suspect]
     Dosage: 15 MG, QD
  3. ZYPREXA [Suspect]
     Dosage: 5 MG, BID

REACTIONS (1)
  - Neutropenia [Recovered/Resolved]
